FAERS Safety Report 8282330-9 (Version None)
Quarter: 2012Q2

REPORT INFORMATION
  Report Type: 
  Country: None (occurrence: None)
  Receive Date: 20120413
  Receipt Date: 20120411
  Transmission Date: 20120825
  Serious: No
  Sender: FDA-Public Use
  Company Number: US-TEVA-327733USA

PATIENT
  Sex: Male
  Weight: 95.34 kg

DRUGS (1)
  1. PROAIR HFA [Suspect]
     Indication: CHRONIC OBSTRUCTIVE PULMONARY DISEASE
     Dosage: 45 MICROGRAM;
     Route: 055
     Dates: start: 20090101

REACTIONS (1)
  - BLOOD ALCOHOL INCREASED [None]
